FAERS Safety Report 6854931-3 (Version None)
Quarter: 2010Q3

REPORT INFORMATION
  Report Type: 
  Country: None (occurrence: None)
  Receive Date: 20100717
  Receipt Date: 20080229
  Transmission Date: 20110219
  Serious: Yes (Other)
  Sender: FDA-Public Use
  Company Number: US-PFIZER INC-2008003200

PATIENT
  Sex: Male
  Weight: 124.7 kg

DRUGS (4)
  1. CHANTIX [Suspect]
     Indication: SMOKING CESSATION THERAPY
     Dates: start: 20070901, end: 20071201
  2. ATIVAN [Concomitant]
  3. PLAVIX [Concomitant]
  4. CHOLESTEROL [Concomitant]

REACTIONS (7)
  - ABNORMAL DREAMS [None]
  - DRUG ADMINISTRATION ERROR [None]
  - FLATULENCE [None]
  - FLUSHING [None]
  - NAUSEA [None]
  - NIGHT BLINDNESS [None]
  - VISION BLURRED [None]
